FAERS Safety Report 10932372 (Version 2)
Quarter: 2015Q2

REPORT INFORMATION
  Report Type: Spontaneous
  Country: US (occurrence: US)
  Receive Date: 20150320
  Receipt Date: 20150526
  Transmission Date: 20150821
  Serious: No
  Sender: FDA-Public Use
  Company Number: US-JNJFOC-20141100565

PATIENT
  Sex: Male

DRUGS (2)
  1. RISPERIDONE. [Suspect]
     Active Substance: RISPERIDONE
     Indication: DEPRESSION
     Route: 048
     Dates: start: 20101217, end: 20121215
  2. RISPERIDONE. [Suspect]
     Active Substance: RISPERIDONE
     Indication: BIPOLAR DISORDER
     Route: 048
     Dates: start: 20101217, end: 20121215

REACTIONS (4)
  - Galactorrhoea [Recovered/Resolved]
  - Emotional disorder [Unknown]
  - Gynaecomastia [Not Recovered/Not Resolved]
  - Abnormal weight gain [Not Recovered/Not Resolved]
